FAERS Safety Report 9094460 (Version 1)
Quarter: 2013Q1

REPORT INFORMATION
  Report Type: Report from Study
  Country: US (occurrence: US)
  Receive Date: 20130131
  Receipt Date: 20130131
  Transmission Date: 20140127
  Serious: No
  Sender: FDA-Public Use
  Company Number: US-ABBOTT-12P-163-1015407-00

PATIENT
  Age: 20 Year
  Sex: Female

DRUGS (9)
  1. HUMIRA [Suspect]
     Indication: COLITIS ULCERATIVE
     Route: 058
     Dates: start: 201112
  2. PREDNISONE [Suspect]
     Route: 048
  3. PREDNISONE [Suspect]
     Dosage: RAPIDLY TAPERED OFF
  4. IMURAN [Concomitant]
     Indication: COLITIS ULCERATIVE
  5. BIOCENE [Concomitant]
     Indication: PRODUCT USED FOR UNKNOWN INDICATION
     Dosage: 500MCG DAILY
  6. VIT D3 [Concomitant]
     Indication: PRODUCT USED FOR UNKNOWN INDICATION
  7. FOLIC ACID [Concomitant]
     Indication: PRODUCT USED FOR UNKNOWN INDICATION
     Dosage: 400MCG DAILY
  8. PRENATAL VITAMINS [Concomitant]
     Indication: GASTROINTESTINAL DISORDER
     Dosage: DAILY
  9. PRENATAL VITAMINS [Concomitant]
     Indication: SUPPLEMENTATION THERAPY

REACTIONS (6)
  - Colitis ulcerative [Not Recovered/Not Resolved]
  - Energy increased [Unknown]
  - Asthenia [Unknown]
  - Depression [Unknown]
  - Suicidal ideation [Unknown]
  - Bronchitis [Unknown]
